FAERS Safety Report 8477980-0 (Version None)
Quarter: 2012Q2

REPORT INFORMATION
  Report Type: 
  Country: None (occurrence: None)
  Receive Date: 20120629
  Receipt Date: 20120619
  Transmission Date: 20120825
  Serious: Yes (Other)
  Sender: FDA-Public Use
  Company Number: IE-SANOFI-AVENTIS-2012SA035783

PATIENT
  Age: 80 Year
  Sex: Male

DRUGS (6)
  1. PLAVIX [Suspect]
     Route: 065
  2. ANTITHROMBOTIC AGENTS [Concomitant]
  3. ASPIRIN [Suspect]
     Route: 065
  4. PLAVIX [Suspect]
     Indication: CEREBROVASCULAR ACCIDENT PROPHYLAXIS
     Route: 065
  5. ASPIRIN [Suspect]
     Indication: CEREBROVASCULAR ACCIDENT PROPHYLAXIS
     Route: 065
  6. WARFARIN SODIUM [Concomitant]

REACTIONS (1)
  - ATRIAL FIBRILLATION [None]
